FAERS Safety Report 16309073 (Version 4)
Quarter: 2019Q2

REPORT INFORMATION
  Report Type: Report from Study
  Country: DE (occurrence: DE)
  Receive Date: 20190514
  Receipt Date: 20190610
  Transmission Date: 20190711
  Serious: Yes (Death, Hospitalization)
  Sender: FDA-Public Use
  Company Number: DE-PORTOLA PHARMACEUTICALS, INC.-2019DE000034

PATIENT
  Sex: Male

DRUGS (3)
  1. ANDEXXA [Suspect]
     Active Substance: ANDEXANET ALFA
     Dosage: 960 MG, SINGLE INFUSION
     Route: 041
     Dates: start: 20190430, end: 20190430
  2. ANDEXXA [Suspect]
     Active Substance: ANDEXANET ALFA
     Indication: PROCOAGULANT THERAPY
     Dosage: 800 MG, SINGLE BOLUS
     Route: 040
     Dates: start: 20190430, end: 20190430
  3. RIVAROXABAN [Concomitant]
     Active Substance: RIVAROXABAN
     Dosage: 15 MG, QD
     Dates: end: 20190430

REACTIONS (2)
  - Sepsis [Fatal]
  - Atrial thrombosis [Not Recovered/Not Resolved]

NARRATIVE: CASE EVENT DATE: 20190506
